FAERS Safety Report 23044898 (Version 1)
Quarter: 2023Q4

REPORT INFORMATION
  Report Type: Spontaneous
  Country: US (occurrence: US)
  Receive Date: 20231009
  Receipt Date: 20231009
  Transmission Date: 20240109
  Serious: Yes (Other)
  Sender: FDA-Public Use
  Company Number: US-002147023-NVSC2023US215091

PATIENT

DRUGS (2)
  1. ASCIMINIB [Suspect]
     Active Substance: ASCIMINIB
     Indication: Product used for unknown indication
     Dosage: 200 MG, BID
     Route: 048
  2. ASCIMINIB [Suspect]
     Active Substance: ASCIMINIB
     Dosage: 100 MG, BID
     Route: 048

REACTIONS (2)
  - Cytopenia [Unknown]
  - Liver function test increased [Unknown]
